FAERS Safety Report 9200343 (Version 2)
Quarter: 2013Q2

REPORT INFORMATION
  Report Type: Report from Study
  Country: US (occurrence: US)
  Receive Date: 20130329
  Receipt Date: 20130502
  Transmission Date: 20140414
  Serious: Yes (Hospitalization)
  Sender: FDA-Public Use
  Company Number: US-ABBOTT-13P-163-1068157-00

PATIENT
  Age: 45 Year
  Sex: Male

DRUGS (8)
  1. HUMIRA [Suspect]
     Indication: CROHN^S DISEASE
     Dates: start: 201212
  2. OCTREOTIDE [Concomitant]
     Indication: GASTROINTESTINAL STOMA COMPLICATION
  3. CYCLOBENZAPRINE [Concomitant]
     Indication: PRODUCT USED FOR UNKNOWN INDICATION
     Dosage: TAKE 1 TABLET NIGHTLY AS NEEDED
     Route: 048
  4. VITAMIN D [Concomitant]
     Indication: PRODUCT USED FOR UNKNOWN INDICATION
     Route: 048
  5. HYDROCODONE-ACETAMINOPHEN [Concomitant]
     Indication: PRODUCT USED FOR UNKNOWN INDICATION
     Dosage: 5-500 MG ONE TABLET EVERY 6 HOURS AS NEEDED
  6. MIDODRINE [Concomitant]
     Indication: BLOOD PRESSURE DECREASED
     Dosage: TAKE THREE TIMES A DAY WITH FOOD
  7. AMITRIPTYLINE [Concomitant]
     Indication: PRODUCT USED FOR UNKNOWN INDICATION
     Dosage: 1-2 TABLETS AT NIGHT AS NEEDED
  8. MAGNESIUM OXIDE [Concomitant]
     Indication: PRODUCT USED FOR UNKNOWN INDICATION
     Route: 048

REACTIONS (8)
  - Hypotension [Unknown]
  - Viral infection [Unknown]
  - Pyrexia [Not Recovered/Not Resolved]
  - Chest discomfort [Unknown]
  - Sensation of heaviness [Unknown]
  - Cough [Unknown]
  - Dyspnoea [Unknown]
  - Tachycardia [Unknown]
